FAERS Safety Report 21841801 (Version 1)
Quarter: 2023Q1

REPORT INFORMATION
  Report Type: Report from Study
  Country: US (occurrence: US)
  Receive Date: 20230110
  Receipt Date: 20230110
  Transmission Date: 20230417
  Serious: No
  Sender: FDA-Public Use
  Company Number: US-ABBVIE-4263043

PATIENT
  Sex: Male

DRUGS (1)
  1. IMBRUVICA [Suspect]
     Active Substance: IBRUTINIB
     Indication: Myelodysplastic syndrome
     Route: 048

REACTIONS (7)
  - Formication [Not Recovered/Not Resolved]
  - Dry skin [Not Recovered/Not Resolved]
  - Skin burning sensation [Not Recovered/Not Resolved]
  - Skin haemorrhage [Unknown]
  - Neuralgia [Not Recovered/Not Resolved]
  - Feeling abnormal [Unknown]
  - Skin warm [Not Recovered/Not Resolved]
